FAERS Safety Report 15131866 (Version 4)
Quarter: 2018Q3

REPORT INFORMATION
  Report Type: Spontaneous
  Country: DE (occurrence: DE)
  Receive Date: 20180711
  Receipt Date: 20180817
  Transmission Date: 20181010
  Serious: Yes (Death, Life-Threatening)
  Sender: FDA-Public Use
  Company Number: DE-GEHC-2018CSU002633

PATIENT

DRUGS (1)
  1. ACCUPAQUE [Suspect]
     Active Substance: IOHEXOL
     Indication: GRANULOMATOSIS WITH POLYANGIITIS
     Dosage: 100 ML, SINGLE
     Route: 042
     Dates: start: 20180601, end: 20180601

REACTIONS (4)
  - Cardiac arrest [Fatal]
  - Bradycardia [Fatal]
  - Blood pressure decreased [Fatal]
  - Anaphylactic shock [Fatal]

NARRATIVE: CASE EVENT DATE: 20180601
